FAERS Safety Report 5708798-7 (Version None)
Quarter: 2008Q2

REPORT INFORMATION
  Report Type: 
  Country: None (occurrence: None)
  Receive Date: 20080416
  Receipt Date: 20080331
  Transmission Date: 20081010
  Serious: Yes (Death, Other)
  Sender: FDA-Public Use
  Company Number: 18883

PATIENT
  Age: 73 Year
  Sex: Female

DRUGS (2)
  1. METHOTREXATE [Suspect]
     Indication: RHEUMATOID ARTHRITIS
  2. CYCLOSPORINE [Suspect]
     Indication: RHEUMATOID ARTHRITIS

REACTIONS (16)
  - ANAEMIA [None]
  - BRONCHOPNEUMONIA [None]
  - CARDIAC FAILURE [None]
  - CHRONIC OBSTRUCTIVE PULMONARY DISEASE [None]
  - GENERAL PHYSICAL HEALTH DETERIORATION [None]
  - LEUKOPENIA [None]
  - LIVER FUNCTION TEST ABNORMAL [None]
  - METASTATIC NEOPLASM [None]
  - PANCREATITIS ACUTE [None]
  - PNEUMOCYSTIS JIROVECI PNEUMONIA [None]
  - PNEUMONIA CYTOMEGALOVIRAL [None]
  - PULMONARY FIBROSIS [None]
  - PULMONARY NECROSIS [None]
  - PULMONARY TUBERCULOSIS [None]
  - RENAL CELL CARCINOMA [None]
  - RHEUMATOID LUNG [None]
